FAERS Safety Report 15034663 (Version 5)
Quarter: 2020Q2

REPORT INFORMATION
  Report Type: Spontaneous
  Country: US (occurrence: US)
  Receive Date: 20180620
  Receipt Date: 20200526
  Transmission Date: 20200713
  Serious: Yes (Hospitalization)
  Sender: FDA-Public Use
  Company Number: US-ASTRAZENECA-2018SE76558

PATIENT
  Age: 66 Year
  Sex: Female
  Weight: 51.3 kg

DRUGS (11)
  1. FASENRA [Suspect]
     Active Substance: BENRALIZUMAB
     Indication: EOSINOPHIL COUNT INCREASED
     Dosage: 30MG, EVERY 4 WEEKS FOR 3 DOSES, THEN EVERY 8 WEEKS AFTER
     Route: 058
     Dates: start: 20180502, end: 20180502
  2. CORTICOSTEROIDS [Concomitant]
     Active Substance: CORTICOSTEROID NOS
  3. FLECAINIDE [Concomitant]
     Active Substance: FLECAINIDE
     Dosage: 10 MG DAILY NOW AS REQUIRED
     Route: 065
  4. FASENRA [Suspect]
     Active Substance: BENRALIZUMAB
     Indication: ASTHMA
     Route: 058
     Dates: start: 20180606, end: 20181024
  5. SINGULAIR [Concomitant]
     Active Substance: MONTELUKAST SODIUM
     Indication: ASTHMA
     Dosage: 10 MG DAILY NOW AS REQUIRED
     Route: 065
  6. FASENRA [Suspect]
     Active Substance: BENRALIZUMAB
     Indication: ASTHMA
     Route: 058
     Dates: start: 20180606, end: 20181024
  7. ADVAIR HFA [Concomitant]
     Active Substance: FLUTICASONE PROPIONATE\SALMETEROL XINAFOATE
     Indication: ASTHMA
     Dosage: 115 MG DAILY NOW AS REQUIRED
     Route: 065
  8. FASENRA [Suspect]
     Active Substance: BENRALIZUMAB
     Indication: ASTHMA
     Dosage: 30MG, EVERY 4 WEEKS FOR 3 DOSES, THEN EVERY 8 WEEKS AFTER
     Route: 058
     Dates: start: 20180502, end: 20180502
  9. FASENRA [Suspect]
     Active Substance: BENRALIZUMAB
     Indication: ASTHMA
     Dosage: 30MG, EVERY 4 WEEKS FOR 3 DOSES, THEN EVERY 8 WEEKS AFTER
     Route: 058
     Dates: start: 20180502, end: 20180502
  10. FASENRA [Suspect]
     Active Substance: BENRALIZUMAB
     Indication: EOSINOPHIL COUNT INCREASED
     Route: 058
     Dates: start: 20180606, end: 20181024
  11. CARDIZEM [Concomitant]
     Active Substance: DILTIAZEM HYDROCHLORIDE
     Dosage: 10 MG DAILY NOW AS REQUIRED
     Route: 065

REACTIONS (8)
  - Dyspnoea [Recovering/Resolving]
  - Fractional exhaled nitric oxide abnormal [Unknown]
  - Product use in unapproved indication [Unknown]
  - Symptom recurrence [Unknown]
  - Atrial fibrillation [Recovering/Resolving]
  - Off label use [Unknown]
  - Therapeutic product effect decreased [Unknown]
  - Malaise [Unknown]

NARRATIVE: CASE EVENT DATE: 2018
